FAERS Safety Report 8811961 (Version 2)
Quarter: 2012Q4

REPORT INFORMATION
  Report Type: 
  Country: US (occurrence: US)
  Receive Date: 20120927
  Receipt Date: 20121004
  Transmission Date: 20130627
  Serious: Yes (Hospitalization, Other)
  Sender: FDA-Public Use
  Company Number: US-NOVOPROD-360474

PATIENT
  Age: 13 Year
  Sex: Male
  Weight: 38.1 kg

DRUGS (1)
  1. NORDITROPIN FLEXPRO 6.7 MG/ML [Suspect]
     Indication: SMALL FOR DATES BABY
     Dosage: 1.9 mg, qd
     Route: 058
     Dates: start: 200912

REACTIONS (2)
  - Haemoglobin decreased [Recovered/Resolved]
  - Ulcer [Recovering/Resolving]
